FAERS Safety Report 4907575-4 (Version None)
Quarter: 2006Q1

REPORT INFORMATION
  Report Type: 
  Country: None (occurrence: None)
  Receive Date: 20060210
  Receipt Date: 20060130
  Transmission Date: 20060701
  Serious: Yes (Hospitalization)
  Sender: FDA-Public Use
  Company Number: FR-ABBOTT-06P-056-0323827-00

PATIENT
  Age: 61 Year
  Sex: Female

DRUGS (2)
  1. SILVER SULFADIAZINE [Suspect]
     Indication: PYODERMA GANGRENOSUM
     Route: 061
  2. CORTICOSTEROIDS [Concomitant]
     Indication: PYODERMA GANGRENOSUM

REACTIONS (5)
  - DEPRESSED LEVEL OF CONSCIOUSNESS [None]
  - LEUKOPENIA [None]
  - PROTEINURIA [None]
  - PULMONARY OEDEMA [None]
  - RENAL FAILURE ACUTE [None]
